FAERS Safety Report 23124274 (Version 1)
Quarter: 2023Q4

REPORT INFORMATION
  Report Type: Spontaneous
  Country: US (occurrence: None)
  Receive Date: 20231027
  Receipt Date: 20231027
  Transmission Date: 20240110
  Serious: Yes (Disabling)
  Sender: FDA-Public Use
  Company Number: None

PATIENT
  Age: 85 Year
  Sex: Female
  Weight: 59.85 kg

DRUGS (5)
  1. LOVASTATIN [Suspect]
     Active Substance: LOVASTATIN
  2. PRAVASTATIN [Suspect]
     Active Substance: PRAVASTATIN
  3. RISEDRONATE SODIUM [Suspect]
     Active Substance: RISEDRONATE SODIUM
  4. ALENDRONATE [Suspect]
     Active Substance: ALENDRONATE SODIUM
  5. OXYBUTYNIN [Suspect]
     Active Substance: OXYBUTYNIN

REACTIONS (4)
  - Joint swelling [None]
  - Amnesia [None]
  - Myalgia [None]
  - Arthralgia [None]
